FAERS Safety Report 11217794 (Version 1)
Quarter: 2015Q2

REPORT INFORMATION
  Report Type: Spontaneous
  Country: US (occurrence: None)
  Receive Date: 20150624
  Receipt Date: 20150624
  Transmission Date: 20150821
  Serious: Yes (Hospitalization, Other)
  Sender: FDA-Public Use
  Company Number: None

PATIENT
  Age: 43 Year
  Sex: Female
  Weight: 79.38 kg

DRUGS (1)
  1. EXJADE [Suspect]
     Active Substance: DEFERASIROX
     Indication: IRON OVERLOAD
     Dosage: 500 MG, DAILY, PO
     Route: 048
     Dates: start: 20130226

REACTIONS (4)
  - Asthma [None]
  - Sickle cell anaemia with crisis [None]
  - Drug dose omission [None]
  - Abdominal discomfort [None]

NARRATIVE: CASE EVENT DATE: 201506
